FAERS Safety Report 16345919 (Version 3)
Quarter: 2019Q3

REPORT INFORMATION
  Report Type: Spontaneous
  Country: JP (occurrence: JP)
  Receive Date: 20190523
  Receipt Date: 20190710
  Transmission Date: 20191004
  Serious: Yes (Other)
  Sender: FDA-Public Use
  Company Number: JP-GLAXOSMITHKLINE-JP2019JPN089143

PATIENT
  Age: 28 Year
  Sex: Female
  Weight: 50 kg

DRUGS (10)
  1. PLAQUENIL TABLETS (HYDROXYCHLOROQUINE SULFATE) [Concomitant]
     Indication: SYSTEMIC LUPUS ERYTHEMATOSUS
     Dosage: 200 MG, 1D
     Dates: start: 20181205, end: 20190326
  2. GASCON TABLET (DIMETHICONE) [Concomitant]
     Indication: ABDOMINAL DISTENSION
     Dosage: 120 MG, 1D
     Dates: start: 20190116, end: 20190403
  3. ACUATIM CREAM [Concomitant]
     Indication: ACNE
     Dosage: ADEQUATE DOSE
     Dates: start: 20190116, end: 20190403
  4. JUNCHOTO [Concomitant]
     Active Substance: HERBALS
     Indication: CONSTIPATION
     Dosage: 7.5 G, 1D
     Dates: start: 20190116, end: 20190403
  5. PREDONINE [Concomitant]
     Active Substance: PREDNISOLONE
     Indication: SYSTEMIC LUPUS ERYTHEMATOSUS
     Dosage: 8 MG, 1D
     Dates: start: 20190301
  6. PLAQUENIL TABLETS (HYDROXYCHLOROQUINE SULFATE) [Concomitant]
     Dosage: 300 MG, 1D
     Dates: start: 20190327
  7. DIFFERIN [Concomitant]
     Active Substance: ADAPALENE
     Indication: ACNE
     Dosage: ADEQUATE DOSE
     Dates: start: 20190116, end: 20190403
  8. NEXIUM CAPSULE [Concomitant]
     Indication: GASTROOESOPHAGEAL REFLUX DISEASE
     Dosage: 20 MG, 1D
     Dates: start: 20190313, end: 20190403
  9. BENLYSTA [Suspect]
     Active Substance: BELIMUMAB
     Indication: SYSTEMIC LUPUS ERYTHEMATOSUS
     Dosage: 499 MG, 1D
     Route: 041
     Dates: start: 20190327, end: 20190327
  10. KAKKONTO [Concomitant]
     Active Substance: HERBALS
     Indication: NASOPHARYNGITIS
     Dosage: 7.5 G, 1D
     Dates: start: 20190327, end: 20190403

REACTIONS (4)
  - Exposure during pregnancy [Unknown]
  - Abortion complete [Recovered/Resolved]
  - Haemorrhage in pregnancy [Unknown]
  - Abdominal pain [Unknown]

NARRATIVE: CASE EVENT DATE: 20190413
